FAERS Safety Report 9799926 (Version 1)
Quarter: 2014Q1

REPORT INFORMATION
  Report Type: Spontaneous
  Country: US (occurrence: US)
  Receive Date: 20140106
  Receipt Date: 20140106
  Transmission Date: 20141002
  Serious: No
  Sender: FDA-Public Use
  Company Number: US-BAYER-2014-001537

PATIENT
  Age: 91 Year
  Sex: Female
  Weight: 55.33 kg

DRUGS (3)
  1. ALEVE LIQUID GELS [Suspect]
     Indication: ASTHENIA
     Dosage: 1 DF, BID
     Route: 048
     Dates: start: 2012
  2. ALEVE GELCAPS [Suspect]
     Dosage: 1 DF, UNK
     Route: 048
  3. BAYER ASPIRIN REGIMEN ADULT LOW STRENGTH [Concomitant]
     Indication: ISCHAEMIC HEART DISEASE PROPHYLAXIS
     Dosage: 1 DF, QD
     Route: 048

REACTIONS (4)
  - Incorrect drug administration duration [None]
  - Off label use [None]
  - Incorrect dose administered [None]
  - Vomiting [Recovered/Resolved]
